FAERS Safety Report 9637561 (Version 1)
Quarter: 2013Q4

REPORT INFORMATION
  Report Type: Spontaneous
  Country: CA (occurrence: CA)
  Receive Date: 20131022
  Receipt Date: 20131022
  Transmission Date: 20140711
  Serious: Yes (Other)
  Sender: FDA-Public Use
  Company Number: CA-ASTELLAS-2013US010862

PATIENT
  Age: 15 Year
  Sex: Male

DRUGS (5)
  1. PROGRAF [Suspect]
     Indication: NEPHROTIC SYNDROME
     Dosage: 2 MG, BID
     Route: 048
     Dates: start: 20080807
  2. PREDNISONE [Concomitant]
     Indication: PRODUCT USED FOR UNKNOWN INDICATION
     Dosage: 7.5 MG, UID/QD
     Route: 065
  3. PREDNISONE [Concomitant]
     Dosage: 5 MG, UID/QD
     Route: 065
  4. PREDNISONE [Concomitant]
     Dosage: 7.5 MG, UID/QD
     Route: 065
  5. AMLODIPIN                          /00972401/ [Concomitant]
     Indication: PRODUCT USED FOR UNKNOWN INDICATION
     Dosage: 5 MG, UID/QD
     Route: 065

REACTIONS (2)
  - Off label use [Unknown]
  - Osteopenia [Unknown]
